FAERS Safety Report 7177173-3 (Version None)
Quarter: 2010Q4

REPORT INFORMATION
  Report Type: 
  Country: None (occurrence: None)
  Receive Date: 20101220
  Receipt Date: 20101208
  Transmission Date: 20110411
  Serious: Yes (Hospitalization, Other)
  Sender: FDA-Public Use
  Company Number: US-ROCHE-727163

PATIENT
  Sex: Male
  Weight: 74.8 kg

DRUGS (4)
  1. ACCUTANE [Suspect]
     Indication: CORNEAL DISORDER
     Route: 065
     Dates: start: 19960301, end: 19960501
  2. ACCUTANE [Suspect]
     Route: 065
     Dates: start: 19981001
  3. PREDNISOLONE [Concomitant]
  4. METHAZOLAMIDE [Concomitant]

REACTIONS (5)
  - CROHN'S DISEASE [None]
  - DIVERTICULITIS MECKEL'S [None]
  - GASTROINTESTINAL INJURY [None]
  - INFLAMMATORY BOWEL DISEASE [None]
  - INTESTINAL HAEMORRHAGE [None]
